FAERS Safety Report 6655864-8 (Version None)
Quarter: 2010Q1

REPORT INFORMATION
  Report Type: 
  Country: None (occurrence: None)
  Receive Date: 20100329
  Receipt Date: 20091218
  Transmission Date: 20100710
  Serious: Yes (Hospitalization)
  Sender: FDA-Public Use
  Company Number: FR-JNJFOC-20090403659

PATIENT
  Age: 70 Year
  Sex: Male

DRUGS (6)
  1. LEVOFLOXACIN [Suspect]
     Indication: INFLUENZA
     Route: 065
  2. KETEK [Suspect]
     Indication: INFLUENZA
     Route: 065
  3. FLUINDIONE [Suspect]
     Indication: THROMBOSIS
     Dosage: { 1 YEAR
     Route: 065
  4. AMOXICILLIN AND CLAVULANATE POTASSIUM [Suspect]
     Indication: INFLUENZA
     Route: 065
  5. HYDROXYCHLOROQUINE SULFATE [Concomitant]
     Indication: RHEUMATOID ARTHRITIS
     Route: 065
  6. METHOTREXATE [Concomitant]
     Indication: RHEUMATOID ARTHRITIS
     Route: 065

REACTIONS (4)
  - PYREXIA [None]
  - RENAL FAILURE [None]
  - RENAL TUBULAR DISORDER [None]
  - WEIGHT DECREASED [None]
